FAERS Safety Report 7603626-7 (Version None)
Quarter: 2011Q3

REPORT INFORMATION
  Report Type: 
  Country: None (occurrence: None)
  Receive Date: 20110712
  Receipt Date: 20110706
  Transmission Date: 20111222
  Serious: No
  Sender: FDA-Public Use
  Company Number: US-PFIZER INC-2011091597

PATIENT
  Age: 55 Year
  Sex: Female
  Weight: 68.027 kg

DRUGS (2)
  1. CHANTIX [Suspect]
     Dosage: 1 MG, UNK
  2. CHANTIX [Suspect]
     Dosage: 0.5 MG, UNK

REACTIONS (4)
  - VOMITING [None]
  - NAUSEA [None]
  - PAROSMIA [None]
  - DECREASED APPETITE [None]
